FAERS Safety Report 10012902 (Version 2)
Quarter: 2014Q1

REPORT INFORMATION
  Report Type: Report from Study
  Country: US (occurrence: US)
  Receive Date: 20140314
  Receipt Date: 20140314
  Transmission Date: 20141002
  Serious: Yes (Hospitalization, Other)
  Sender: FDA-Public Use
  Company Number: US-TAKEDA-2014TUS000305

PATIENT
  Age: 77 Year
  Sex: Male
  Weight: 97.5 kg

DRUGS (38)
  1. BLINDED ALLOPURINOL [Suspect]
     Indication: HYPERURICAEMIA
     Dosage: UNK, QD
     Route: 048
     Dates: start: 20131211, end: 20140114
  2. BLINDED FEBUXOSTAT [Suspect]
     Indication: HYPERURICAEMIA
     Dosage: UNK, QD
     Route: 048
     Dates: start: 20131211, end: 20140114
  3. BLINDED ALLOPURINOL [Suspect]
     Dosage: UNK, QD
     Route: 048
     Dates: start: 20140115, end: 20140207
  4. BLINDED FEBUXOSTAT [Suspect]
     Dosage: UNK, QD
     Route: 048
     Dates: start: 20140115, end: 20140207
  5. BLINDED ALLOPURINOL [Suspect]
     Dosage: UNK, QD
     Route: 048
     Dates: start: 20140209, end: 20140308
  6. BLINDED FEBUXOSTAT [Suspect]
     Dosage: UNK, QD
     Route: 048
     Dates: start: 20140209, end: 20140308
  7. ACETAMINOPHEN [Concomitant]
     Indication: PAIN
     Dosage: 500 MG, PRN
     Route: 048
     Dates: start: 20121115
  8. ALBUTEROL                          /00139501/ [Concomitant]
     Indication: CHRONIC OBSTRUCTIVE PULMONARY DISEASE
     Dosage: 90 ?G, EVERY 4 HR PRN
     Route: 050
     Dates: start: 20130225
  9. ATORVASTATIN [Concomitant]
     Indication: HYPERLIPIDAEMIA
     Dosage: 40 MG, QD
     Route: 048
     Dates: start: 20130520
  10. CARVEDILOL [Concomitant]
     Indication: HYPERTENSION
     Dosage: 25 MG, BID
     Route: 048
     Dates: start: 20110904
  11. CARVEDILOL [Concomitant]
     Indication: CARDIOVASCULAR EVENT PROPHYLAXIS
  12. CLOPIDOGREL [Concomitant]
     Indication: CORONARY ARTERY DISEASE
     Dosage: 75 MG, QD
     Route: 048
     Dates: start: 20110730
  13. CYANOCOBALAMIN [Concomitant]
     Indication: HYPOVITAMINOSIS
     Dosage: 1000 ?G, EVERY 30 DAYS
     Route: 023
     Dates: start: 20130225
  14. FERROUS SULFATE [Concomitant]
     Indication: ANAEMIA
     Dosage: 325 MG, QD
     Route: 048
     Dates: start: 20130329
  15. FUROSEMIDE [Concomitant]
     Indication: HYPERTENSION
     Dosage: 40 MG, QD
     Route: 048
     Dates: start: 20130225
  16. GABAPENTIN [Concomitant]
     Indication: PRODUCT USED FOR UNKNOWN INDICATION
     Dosage: 300 MG, QD
     Route: 048
     Dates: start: 20090617
  17. HYDROPHOR [Concomitant]
     Indication: ECZEMA ASTEATOTIC
     Dosage: N/A, N/A, BID PRN
     Route: 061
     Dates: start: 20131226
  18. ISOSORBIDE MONONITRATE [Concomitant]
     Indication: PRODUCT USED FOR UNKNOWN INDICATION
     Dosage: 120 MG, QD
     Route: 048
     Dates: start: 2003
  19. MICONAZOLE NITRATE [Concomitant]
     Indication: PRODUCT USED FOR UNKNOWN INDICATION
     Dosage: N/A, N/A, QD
     Route: 061
     Dates: start: 2012
  20. MOMETASONE FUROATE [Concomitant]
     Indication: CHRONIC OBSTRUCTIVE PULMONARY DISEASE
     Dosage: 220 ?G, BID
     Route: 050
     Dates: start: 2012
  21. MULTIVITAMIN [Concomitant]
     Indication: NUTRITIONAL SUPPLEMENTATION
     Dosage: UNK, UNK, QD
     Route: 048
     Dates: start: 2001
  22. OMEPRAZOLE [Concomitant]
     Indication: GASTROINTESTINAL DISORDER
     Dosage: 20 MG, QD
     Route: 048
     Dates: start: 2004
  23. POLYETHYLENE GLYCOL [Concomitant]
     Indication: LAXATIVE SUPPORTIVE CARE
     Dosage: 17 G, QD
     Route: 048
     Dates: start: 2013
  24. RANOLAZINE [Concomitant]
     Indication: PRODUCT USED FOR UNKNOWN INDICATION
     Dosage: 1000 MG, BID
     Route: 048
     Dates: start: 2009
  25. RANOLAZINE [Concomitant]
     Indication: CARDIOVASCULAR EVENT PROPHYLAXIS
     Dosage: 1000 MG, BID
     Route: 048
     Dates: start: 20130809
  26. TAMSULOSIN [Concomitant]
     Indication: BENIGN PROSTATIC HYPERPLASIA
     Dosage: 0.4 MG, QD
     Route: 048
     Dates: start: 2007
  27. TIOTROPIUM [Concomitant]
     Indication: CHRONIC OBSTRUCTIVE PULMONARY DISEASE
     Dosage: 18 ?G, QD
     Route: 050
     Dates: start: 2011
  28. WARFARIN [Concomitant]
     Indication: ANTICOAGULANT THERAPY
     Dosage: 2 MG, VARIES
     Route: 048
     Dates: start: 2008
  29. TRAMADOL [Concomitant]
     Indication: PAIN IN EXTREMITY
     Dosage: 25 MG, PRN
     Route: 048
     Dates: start: 20131209
  30. COLCHICINE [Concomitant]
     Indication: GOUT
     Dosage: 0.6 MG, QD
     Dates: start: 20131120
  31. FLUNISOLIDE [Concomitant]
     Indication: HYPERSENSITIVITY
     Dosage: 25 ?G, BID
     Route: 050
     Dates: start: 20140102
  32. DM/GUAIFENESIN [Concomitant]
     Indication: COUGH
     Dosage: 5 ML, TID
     Route: 048
     Dates: start: 20140102
  33. ANALGESIC CREAM [Concomitant]
     Indication: PAIN
     Dosage: SMALL AMOUNT, SMALL AMOUNT, PRN
     Route: 061
     Dates: start: 20131226
  34. ANALGESIC CREAM [Concomitant]
     Indication: INFLAMMATION
  35. LORATIDINE [Concomitant]
     Indication: HYPERSENSITIVITY
     Dosage: 10 MG, QD
     Route: 048
     Dates: start: 20131121
  36. PRAMOXINE [Concomitant]
     Indication: SKIN IRRITATION
     Dosage: SMALL AMOUNT, SMALL AMOUNT, QD
     Route: 061
     Dates: start: 20131206
  37. METFORMIN [Concomitant]
     Indication: DIABETES MELLITUS
     Dosage: 500 MG, BID
     Route: 048
     Dates: start: 20090316
  38. NITROGLYCERIN [Concomitant]
     Indication: CARDIAC FAILURE CONGESTIVE
     Dosage: UNK, PRN
     Route: 048
     Dates: start: 20140113

REACTIONS (3)
  - Cardiac failure congestive [Recovered/Resolved]
  - Cardiac failure congestive [Recovered/Resolved]
  - Cardiac failure congestive [Recovering/Resolving]
